FAERS Safety Report 5489860-3 (Version None)
Quarter: 2007Q4

REPORT INFORMATION
  Report Type: 
  Country: None (occurrence: None)
  Receive Date: 20071018
  Receipt Date: 20071012
  Transmission Date: 20080405
  Serious: Yes (Hospitalization, Other)
  Sender: FDA-Public Use
  Company Number: US-BRISTOL-MYERS SQUIBB COMPANY-13939319

PATIENT
  Age: 60 Year
  Sex: Female
  Weight: 75 kg

DRUGS (5)
  1. ERBITUX [Suspect]
     Indication: COLON CANCER METASTATIC
  2. ARANESP [Concomitant]
     Indication: ANAEMIA OF MALIGNANT DISEASE
     Dates: start: 20070226, end: 20070410
  3. CAMPTOSAR [Concomitant]
  4. MORPHINE SULFATE [Concomitant]
  5. ZOFRAN [Concomitant]

REACTIONS (4)
  - ANAEMIA [None]
  - NARCOTIC INTOXICATION [None]
  - NEUTROPENIA [None]
  - PANCYTOPENIA [None]
